FAERS Safety Report 4524195-4 (Version None)
Quarter: 2004Q4

REPORT INFORMATION
  Report Type: 
  Country: None (occurrence: None)
  Receive Date: 20041209
  Receipt Date: 20041124
  Transmission Date: 20050328
  Serious: Yes (Other)
  Sender: FDA-Public Use
  Company Number: 2004-0007806

PATIENT
  Age: 50 Year
  Sex: Male

DRUGS (3)
  1. HEPSERA [Suspect]
     Dosage: 8 MONTHS PRIOR TO EVENT
     Dates: start: 20041101
  2. ZEFFIX       (LAMIVUDINE) [Suspect]
     Dosage: 1.5 YEAR PRIOR TO EVENT
     Dates: start: 20041101
  3. PEGASYS [Suspect]
     Dosage: MCG
     Dates: start: 20041028, end: 20041101

REACTIONS (9)
  - CRANIAL NEUROPATHY [None]
  - DIPLOPIA [None]
  - FACIAL PALSY [None]
  - PARAESTHESIA [None]
  - PARALYSIS [None]
  - POLYNEUROPATHY [None]
  - TINNITUS [None]
  - VIITH NERVE PARALYSIS [None]
  - VITH NERVE PARALYSIS [None]
